FAERS Safety Report 6692646-5 (Version None)
Quarter: 2010Q2

REPORT INFORMATION
  Report Type: 
  Country: None (occurrence: None)
  Receive Date: 20100422
  Receipt Date: 20100413
  Transmission Date: 20101027
  Serious: Yes (Hospitalization)
  Sender: FDA-Public Use
  Company Number: CG-MERCK-1004USA02154

PATIENT
  Age: 22 Year
  Sex: Female
  Weight: 66 kg

DRUGS (1)
  1. STROMECTOL [Suspect]
     Route: 048
     Dates: start: 20100127, end: 20100127

REACTIONS (11)
  - ASTHENIA [None]
  - BLOOD PRESSURE ABNORMAL [None]
  - CONJUNCTIVAL HAEMORRHAGE [None]
  - DIARRHOEA [None]
  - HEADACHE [None]
  - LOGORRHOEA [None]
  - ORTHOSTATIC HYPOTENSION [None]
  - PERIPHERAL COLDNESS [None]
  - PULSE ABNORMAL [None]
  - SKIN DISORDER [None]
  - VERTIGO [None]
